FAERS Safety Report 17261802 (Version 2)
Quarter: 2020Q1

REPORT INFORMATION
  Report Type: Spontaneous
  Country: US (occurrence: US)
  Receive Date: 20200113
  Receipt Date: 20200203
  Transmission Date: 20200409
  Serious: No
  Sender: FDA-Public Use
  Company Number: US-PFIZER INC-2020010598

PATIENT
  Age: 79 Year
  Sex: Female

DRUGS (1)
  1. PREMARIN [Suspect]
     Active Substance: ESTROGENS, CONJUGATED
     Dosage: UNK
     Dates: start: 20200117

REACTIONS (1)
  - No adverse event [Unknown]
